FAERS Safety Report 11199741 (Version 1)
Quarter: 2015Q2

REPORT INFORMATION
  Report Type: Spontaneous
  Country: US (occurrence: None)
  Receive Date: 20150616
  Receipt Date: 20150616
  Transmission Date: 20150821
  Serious: No
  Sender: FDA-Public Use
  Company Number: None

PATIENT
  Age: 51 Year
  Sex: Male

DRUGS (10)
  1. NORVASC [Concomitant]
     Active Substance: AMLODIPINE BESYLATE
  2. FISH OIL [Concomitant]
     Active Substance: FISH OIL
  3. HOLY BASIL [Concomitant]
  4. MULTIVITAMIN [Concomitant]
     Active Substance: VITAMINS
  5. BYSTOLIC [Concomitant]
     Active Substance: NEBIVOLOL HYDROCHLORIDE
  6. GOTU KOLA [Concomitant]
     Active Substance: GOTU KOLA
  7. BENAZEPRIL [Concomitant]
     Active Substance: BENAZEPRIL\BENAZEPRIL HYDROCHLORIDE
  8. CIALIS [Concomitant]
     Active Substance: TADALAFIL
  9. KLONOPIN [Suspect]
     Active Substance: CLONAZEPAM
     Indication: GENERALISED ANXIETY DISORDER
     Dosage: TAKE 1MG TWICE A DAY  TWICE DAILY TAKEN BY MOUTH
     Route: 048
  10. PRILOSEC [Concomitant]
     Active Substance: OMEPRAZOLE MAGNESIUM

REACTIONS (5)
  - Stress [None]
  - Product substitution issue [None]
  - Drug ineffective [None]
  - Therapy change [None]
  - Drug effect decreased [None]

NARRATIVE: CASE EVENT DATE: 20150610
